FAERS Safety Report 18604256 (Version 4)
Quarter: 2021Q2

REPORT INFORMATION
  Report Type: Spontaneous
  Country: US (occurrence: US)
  Receive Date: 20201211
  Receipt Date: 20210420
  Transmission Date: 20210717
  Serious: Yes (Other)
  Sender: FDA-Public Use
  Company Number: US-GLAXOSMITHKLINE-US2020AMR240724

PATIENT
  Sex: Female

DRUGS (3)
  1. ZEJULA [Suspect]
     Active Substance: NIRAPARIB
     Dosage: 200 MG, QD
  2. ZEJULA [Suspect]
     Active Substance: NIRAPARIB
     Indication: OVARIAN CANCER
     Dosage: 200 MG, QD
     Route: 048
     Dates: start: 20201027
  3. ZEJULA [Suspect]
     Active Substance: NIRAPARIB
     Dosage: 200 MG, QD

REACTIONS (9)
  - Discomfort [Unknown]
  - Squamous cell carcinoma [Unknown]
  - Pruritus [Unknown]
  - Erythema [Unknown]
  - Peripheral swelling [Unknown]
  - Platelet count decreased [Recovered/Resolved]
  - Photosensitivity reaction [Unknown]
  - Dry skin [Unknown]
  - Constipation [Unknown]
